FAERS Safety Report 8687655 (Version 4)
Quarter: 2012Q4

REPORT INFORMATION
  Report Type: Report from Study
  Country: US (occurrence: US)
  Receive Date: 20120727
  Receipt Date: 20121030
  Transmission Date: 20130627
  Serious: Yes (Hospitalization)
  Sender: FDA-Public Use
  Company Number: US-PFIZER INC-2012177803

PATIENT
  Age: 65 Year
  Sex: Male

DRUGS (2)
  1. SUNITINIB MALATE [Suspect]
     Dosage: UNK
     Dates: start: 20120210
  2. MDX-1106 [Suspect]
     Indication: RENAL CELL CARCINOMA
     Dosage: UNK
     Route: 042
     Dates: start: 20111201, end: 20111222

REACTIONS (1)
  - Colitis [Recovered/Resolved]
